FAERS Safety Report 10927667 (Version 1)
Quarter: 2015Q1

REPORT INFORMATION
  Report Type: Report from Study
  Country: AR (occurrence: AR)
  Receive Date: 20150319
  Receipt Date: 20150319
  Transmission Date: 20150721
  Serious: Yes (Disabling, Other)
  Sender: FDA-Public Use
  Company Number: AR-BRISTOL-MYERS SQUIBB COMPANY-20951117

PATIENT
  Age: 54 Year
  Sex: Female

DRUGS (1)
  1. ABATACEPT [Suspect]
     Active Substance: ABATACEPT
     Indication: RHEUMATOID ARTHRITIS
     Dosage: 250 MG, Q4WK
     Route: 042
     Dates: start: 20080901

REACTIONS (10)
  - Drug ineffective [Not Recovered/Not Resolved]
  - Peripheral swelling [Unknown]
  - Lung disorder [Unknown]
  - Cardiac disorder [Unknown]
  - Vaginal disorder [Unknown]
  - Fungal infection [Unknown]
  - Skin disorder [Unknown]
  - Hypersensitivity [Recovering/Resolving]
  - Angioedema [Recovering/Resolving]
  - Liver disorder [Unknown]

NARRATIVE: CASE EVENT DATE: 20140501
